FAERS Safety Report 8922259 (Version 1)
Quarter: 2012Q4

REPORT INFORMATION
  Report Type: 
  Country: FR (occurrence: FR)
  Receive Date: 20121123
  Receipt Date: 20121123
  Transmission Date: 20130627
  Serious: Yes (Life-Threatening, Other)
  Sender: FDA-Public Use
  Company Number: FR-ABBOTT-12P-056-1010100-00

PATIENT
  Age: 32 Year
  Sex: Female

DRUGS (5)
  1. KALETRA [Suspect]
     Indication: PROPHYLAXIS AGAINST HIV INFECTION
     Route: 048
     Dates: start: 20121027, end: 20121030
  2. SEGLOR [Interacting]
     Indication: ORTHOSTATIC HYPOTENSION
     Route: 048
     Dates: start: 20121013, end: 20121030
  3. LITHIUM [Concomitant]
     Indication: BIPOLAR DISORDER
  4. XEROQUEL [Concomitant]
     Indication: BIPOLAR DISORDER
  5. LAMIVUDINE + ZIDOVUDINE [Concomitant]
     Indication: PROPHYLAXIS AGAINST HIV INFECTION

REACTIONS (10)
  - Ergot poisoning [Not Recovered/Not Resolved]
  - Peripheral ischaemia [Not Recovered/Not Resolved]
  - Drug interaction [Not Recovered/Not Resolved]
  - Hepatotoxicity [Not Recovered/Not Resolved]
  - Compartment syndrome [Not Recovered/Not Resolved]
  - Blood pressure decreased [None]
  - Heart rate increased [None]
  - Respiratory rate decreased [None]
  - Arterial spasm [None]
  - Blood creatine phosphokinase increased [None]
